FAERS Safety Report 12364403 (Version 2)
Quarter: 2016Q2

REPORT INFORMATION
  Report Type: Spontaneous
  Country: GB (occurrence: GB)
  Receive Date: 20160512
  Receipt Date: 20160524
  Transmission Date: 20160815
  Serious: Yes (Hospitalization)
  Sender: FDA-Public Use
  Company Number: GB-PFIZER INC-2016241696

PATIENT
  Age: 46 Year
  Sex: Female

DRUGS (9)
  1. NEULASTA [Suspect]
     Active Substance: PEGFILGRASTIM
     Indication: BREAST CANCER
     Dosage: UNK
     Route: 058
  2. EMEND [Concomitant]
     Active Substance: APREPITANT
     Dosage: UNK
  3. 5 FU [Suspect]
     Active Substance: FLUOROURACIL
     Indication: BREAST CANCER
     Dosage: UNK
     Route: 065
  4. METOCLOPRAMIDE. [Concomitant]
     Active Substance: METOCLOPRAMIDE
     Dosage: UNK
  5. APREPITANT. [Concomitant]
     Active Substance: APREPITANT
     Dosage: UNK
  6. EPIRUBICIN HCL [Suspect]
     Active Substance: EPIRUBICIN HYDROCHLORIDE
     Indication: BREAST CANCER
     Dosage: UNK
     Route: 065
  7. TAXOTERE [Suspect]
     Active Substance: DOCETAXEL
     Indication: BREAST CANCER
     Dosage: UNK
     Route: 065
  8. CYCLOPHOSPHAMIDE. [Suspect]
     Active Substance: CYCLOPHOSPHAMIDE
     Indication: BREAST CANCER
     Dosage: UNK
     Route: 065
  9. DEXAMETHASONE. [Concomitant]
     Active Substance: DEXAMETHASONE
     Dosage: UNK

REACTIONS (35)
  - Nasopharyngitis [Not Recovered/Not Resolved]
  - Dry skin [Unknown]
  - Flatulence [Unknown]
  - Decreased appetite [Unknown]
  - Catheter site related reaction [Not Recovered/Not Resolved]
  - Sinus headache [Not Recovered/Not Resolved]
  - Oral pain [Unknown]
  - Tongue coated [Recovered/Resolved]
  - Constipation [Unknown]
  - Malaise [Unknown]
  - Liver function test increased [Not Recovered/Not Resolved]
  - Hepatic enzyme increased [Unknown]
  - Sputum discoloured [Not Recovered/Not Resolved]
  - Skin sensitisation [Unknown]
  - Increased appetite [Unknown]
  - Oral candidiasis [Unknown]
  - Abdominal discomfort [Recovered/Resolved]
  - Abdominal pain upper [Unknown]
  - Dry mouth [Unknown]
  - Insomnia [Unknown]
  - Nausea [Recovered/Resolved]
  - Muscle spasms [Unknown]
  - Weight decreased [Unknown]
  - Oropharyngeal pain [Unknown]
  - Abdominal distension [Unknown]
  - Catheter site pain [Not Recovered/Not Resolved]
  - Fatigue [Unknown]
  - Diarrhoea [Recovered/Resolved]
  - Pain [Recovered/Resolved]
  - Glossodynia [Unknown]
  - Arthralgia [Unknown]
  - Pyrexia [Unknown]
  - Alopecia [Not Recovered/Not Resolved]
  - Catheter site erythema [Unknown]
  - Dyspepsia [Unknown]

NARRATIVE: CASE EVENT DATE: 2016
